FAERS Safety Report 15205501 (Version 1)
Quarter: 2018Q3

REPORT INFORMATION
  Report Type: Spontaneous
  Country: US (occurrence: US)
  Receive Date: 20180628
  Receipt Date: 20180628
  Transmission Date: 20181010
  Serious: Yes (Life-Threatening, Hospitalization, Disabling)
  Sender: FDA-Public Use
  Company Number: None

PATIENT
  Age: 36 Year
  Sex: Female
  Weight: 51.75 kg

DRUGS (1)
  1. BOTOX [Suspect]
     Active Substance: ONABOTULINUMTOXINA
     Indication: MIGRAINE
     Dosage: ?          QUANTITY:31 DF DOSAGE FORM;OTHER ROUTE:31 SUBDERMAL INJECTIONS?
     Dates: start: 20141010, end: 20150112

REACTIONS (5)
  - Gastric ulcer haemorrhage [None]
  - Gastrointestinal haemorrhage [None]
  - Oesophagitis [None]
  - Necrotising oesophagitis [None]
  - Stevens-Johnson syndrome [None]

NARRATIVE: CASE EVENT DATE: 20141021
